FAERS Safety Report 5425472-5 (Version None)
Quarter: 2007Q3

REPORT INFORMATION
  Report Type: 
  Country: None (occurrence: None)
  Receive Date: 20070824
  Receipt Date: 20070817
  Transmission Date: 20080115
  Serious: Yes (Other)
  Sender: FDA-Public Use
  Company Number: US-AMGEN-KDL231153

PATIENT
  Sex: Female
  Weight: 79 kg

DRUGS (2)
  1. ENBREL [Suspect]
     Indication: PSORIASIS
     Route: 058
     Dates: start: 20070430, end: 20070523
  2. HORMONE NOS [Concomitant]
     Dates: start: 20000101

REACTIONS (9)
  - ALANINE AMINOTRANSFERASE INCREASED [None]
  - ASPARTATE AMINOTRANSFERASE INCREASED [None]
  - FATIGUE [None]
  - HYPERSENSITIVITY [None]
  - OEDEMA PERIPHERAL [None]
  - PERIORBITAL OEDEMA [None]
  - PSORIASIS [None]
  - RASH ERYTHEMATOUS [None]
  - SLEEP DISORDER [None]
